FAERS Safety Report 13134728 (Version 1)
Quarter: 2017Q1

REPORT INFORMATION
  Report Type: Spontaneous
  Country: JP (occurrence: JP)
  Receive Date: 20170120
  Receipt Date: 20170120
  Transmission Date: 20170428
  Serious: Yes (Other)
  Sender: FDA-Public Use
  Company Number: JP-PFIZER INC-2017020745

PATIENT
  Age: 32 Year
  Sex: Female

DRUGS (5)
  1. RITODRINE HCL [Concomitant]
     Active Substance: RITODRINE HYDROCHLORIDE
     Dosage: 100 UG/KG/HR
  2. SPIRONOLACTONE. [Suspect]
     Active Substance: SPIRONOLACTONE
     Dosage: 100 MG, DAILY
     Route: 048
  3. POTASSIUM [Concomitant]
     Active Substance: POTASSIUM
     Dosage: UNK (80 MEQ KCL/DAY BY DRIP INFUSION)
     Route: 041
  4. DOPAMINE [Concomitant]
     Active Substance: DOPAMINE\DOPAMINE HYDROCHLORIDE
     Dosage: 5 UG/KG/HR
     Route: 041
  5. POTASSIUM [Concomitant]
     Active Substance: POTASSIUM
     Dosage: UNK (36MEQ/DAY)
     Route: 048

REACTIONS (1)
  - Oligohydramnios [Recovered/Resolved]

NARRATIVE: CASE EVENT DATE: 1998
